FAERS Safety Report 13182136 (Version 1)
Quarter: 2017Q1

REPORT INFORMATION
  Report Type: Spontaneous
  Country: US (occurrence: US)
  Receive Date: 20170202
  Receipt Date: 20170202
  Transmission Date: 20170428
  Serious: Yes (Hospitalization, Disabling, Other)
  Sender: FDA-Public Use
  Company Number: None

PATIENT
  Age: 75 Year
  Sex: Female
  Weight: 72 kg

DRUGS (18)
  1. L-THYROXINE [Concomitant]
     Active Substance: LEVOTHYROXINE
  2. ISOSORBIDE. [Concomitant]
     Active Substance: ISOSORBIDE
  3. DILTIAZEM. [Concomitant]
     Active Substance: DILTIAZEM
  4. COLCHICINE. [Concomitant]
     Active Substance: COLCHICINE
  5. VAGINFEM [Concomitant]
  6. RANEXA [Suspect]
     Active Substance: RANOLAZINE
     Indication: CARDIAC DISORDER
     Dosage: ?          QUANTITY:60 TABLET(S);?
     Route: 048
     Dates: start: 20161217, end: 20170106
  7. RANEXA [Suspect]
     Active Substance: RANOLAZINE
     Indication: DYSPEPSIA
     Dosage: ?          QUANTITY:60 TABLET(S);?
     Route: 048
     Dates: start: 20161217, end: 20170106
  8. ATORVASTATIN [Concomitant]
     Active Substance: ATORVASTATIN
  9. PROAIR HFA [Concomitant]
     Active Substance: ALBUTEROL SULFATE
  10. IPATROPRIUM [Concomitant]
  11. MULTIVITAMIN WOMAN [Concomitant]
  12. PROTONIX [Concomitant]
     Active Substance: PANTOPRAZOLE SODIUM
  13. VITAMIN D [Concomitant]
     Active Substance: CHOLECALCIFEROL
  14. HYDROCODONE [Concomitant]
     Active Substance: HYDROCODONE
  15. QVAAR [Concomitant]
  16. NITROGLYCERINE [Concomitant]
     Active Substance: NITROGLYCERIN
  17. VOLTAREN [Concomitant]
     Active Substance: DICLOFENAC SODIUM
  18. B-50 [Concomitant]

REACTIONS (9)
  - Dizziness [None]
  - Syncope [None]
  - Contusion [None]
  - Vomiting [None]
  - Electrocardiogram abnormal [None]
  - Cough [None]
  - Nausea [None]
  - Extra dose administered [None]
  - Headache [None]

NARRATIVE: CASE EVENT DATE: 20161218
